FAERS Safety Report 6743366-X (Version None)
Quarter: 2010Q2

REPORT INFORMATION
  Report Type: 
  Country: None (occurrence: None)
  Receive Date: 20100527
  Receipt Date: 20100520
  Transmission Date: 20101027
  Serious: Yes (Other)
  Sender: FDA-Public Use
  Company Number: BR-SHIRE-SPV1-2010-00757

PATIENT
  Sex: Male
  Weight: 15 kg

DRUGS (3)
  1. IDURSULFASE [Suspect]
     Indication: MUCOPOLYSACCHARIDOSIS II
     Dosage: UNK, 1X/WEEK
     Route: 041
     Dates: start: 20100329
  2. IDURSULFASE [Suspect]
     Dosage: 7.4 MG, 1X/WEEK
     Route: 041
     Dates: start: 20100419
  3. PENICILLIN                         /00000901/ [Concomitant]
     Indication: UPPER RESPIRATORY TRACT INFECTION
     Dosage: UNK, UNK
     Dates: start: 20100416

REACTIONS (2)
  - INFUSION RELATED REACTION [None]
  - RESPIRATORY DISTRESS [None]
